FAERS Safety Report 17141473 (Version 3)
Quarter: 2020Q1

REPORT INFORMATION
  Report Type: Report from Study
  Country: US (occurrence: US)
  Receive Date: 20191211
  Receipt Date: 20200303
  Transmission Date: 20200409
  Serious: Yes (Hospitalization, Other)
  Sender: FDA-Public Use
  Company Number: NVSC2019US063219

PATIENT
  Age: 52 Year
  Sex: Female

DRUGS (2)
  1. MAYZENT [Suspect]
     Active Substance: SIPONIMOD
     Dosage: 2 MG, QD
     Route: 048
     Dates: start: 20190731
  2. MAYZENT [Suspect]
     Active Substance: SIPONIMOD
     Indication: MULTIPLE SCLEROSIS
     Dosage: 2 MG/KG, QD
     Route: 048
     Dates: start: 20190719

REACTIONS (5)
  - Product dose omission [Unknown]
  - Urinary tract infection [Unknown]
  - Bowel movement irregularity [Unknown]
  - Multiple sclerosis [Unknown]
  - Clostridium difficile colitis [Unknown]

NARRATIVE: CASE EVENT DATE: 20190731
